FAERS Safety Report 4314157-4 (Version None)
Quarter: 2004Q1

REPORT INFORMATION
  Report Type: 
  Country: None (occurrence: None)
  Receive Date: 20040308
  Receipt Date: 20040308
  Transmission Date: 20041129
  Serious: Yes (Other)
  Sender: FDA-Public Use
  Company Number: None

PATIENT
  Sex: Female

DRUGS (4)
  1. REMERON SOLTAB [Suspect]
     Indication: ANXIETY
     Dosage: 30 MG QHS PO
     Route: 048
     Dates: start: 20040201
  2. REMERON SOLTAB [Suspect]
     Indication: DEPRESSION
     Dosage: 30 MG QHS PO
     Route: 048
     Dates: start: 20040201
  3. REMERON SOLTAB [Suspect]
     Indication: INSOMNIA
     Dosage: 30 MG QHS PO
     Route: 048
     Dates: start: 20040201
  4. REMERON SOLTAB [Suspect]
     Indication: POST-TRAUMATIC STRESS DISORDER
     Dosage: 30 MG QHS PO
     Route: 048
     Dates: start: 20040201

REACTIONS (5)
  - ABDOMINAL DISCOMFORT [None]
  - DRUG EFFECT DECREASED [None]
  - INSOMNIA [None]
  - NAUSEA [None]
  - PHARMACEUTICAL PRODUCT COMPLAINT [None]
